FAERS Safety Report 24284966 (Version 2)
Quarter: 2025Q2

REPORT INFORMATION
  Report Type: Spontaneous
  Country: PL (occurrence: PL)
  Receive Date: 20240905
  Receipt Date: 20250620
  Transmission Date: 20250716
  Serious: Yes (Hospitalization, Other)
  Sender: AUROBINDO
  Company Number: PL-MLMSERVICE-20240805-PI152121-00285-1

PATIENT
  Age: 23 Year
  Sex: Female

DRUGS (28)
  1. ARIPIPRAZOLE [Suspect]
     Active Substance: ARIPIPRAZOLE
     Indication: Autism spectrum disorder
     Route: 065
     Dates: start: 202202
  2. ARIPIPRAZOLE [Suspect]
     Active Substance: ARIPIPRAZOLE
     Indication: Schizophrenia
  3. ARIPIPRAZOLE [Suspect]
     Active Substance: ARIPIPRAZOLE
     Indication: COVID-19 immunisation
  4. AMISULPRIDE [Suspect]
     Active Substance: AMISULPRIDE
     Indication: Autism spectrum disorder
     Route: 065
     Dates: start: 202211
  5. AMISULPRIDE [Suspect]
     Active Substance: AMISULPRIDE
     Indication: Schizophrenia
  6. QUETIAPINE [Suspect]
     Active Substance: QUETIAPINE
     Indication: Schizophrenia
     Route: 065
     Dates: start: 202203, end: 202204
  7. QUETIAPINE [Suspect]
     Active Substance: QUETIAPINE
     Indication: Autism spectrum disorder
  8. QUETIAPINE [Suspect]
     Active Substance: QUETIAPINE
     Indication: COVID-19 immunisation
  9. OLANZAPINE [Suspect]
     Active Substance: OLANZAPINE
     Indication: Schizophrenia
     Route: 065
  10. OLANZAPINE [Suspect]
     Active Substance: OLANZAPINE
     Indication: COVID-19 immunisation
  11. OLANZAPINE [Suspect]
     Active Substance: OLANZAPINE
     Indication: Autism spectrum disorder
  12. CLOZAPINE [Suspect]
     Active Substance: CLOZAPINE
     Indication: Schizophrenia
     Dosage: 225 MILLIGRAM, ONCE A DAY
     Route: 065
     Dates: start: 2012, end: 202202
  13. CLOZAPINE [Suspect]
     Active Substance: CLOZAPINE
     Indication: Autism spectrum disorder
  14. RISPERIDONE [Suspect]
     Active Substance: RISPERIDONE
     Indication: Schizophrenia
     Route: 065
     Dates: start: 202204, end: 202207
  15. RISPERIDONE [Suspect]
     Active Substance: RISPERIDONE
     Indication: Autism spectrum disorder
  16. RISPERIDONE [Suspect]
     Active Substance: RISPERIDONE
     Indication: COVID-19 immunisation
  17. HALOPERIDOL [Suspect]
     Active Substance: HALOPERIDOL
     Indication: Schizophrenia
     Route: 065
  18. HALOPERIDOL [Suspect]
     Active Substance: HALOPERIDOL
     Indication: Autism spectrum disorder
  19. HALOPERIDOL [Suspect]
     Active Substance: HALOPERIDOL
     Indication: COVID-19 immunisation
  20. ZUCLOPENTHIXOL [Suspect]
     Active Substance: ZUCLOPENTHIXOL
     Indication: Schizophrenia
     Route: 065
  21. ZUCLOPENTHIXOL [Suspect]
     Active Substance: ZUCLOPENTHIXOL
     Indication: Autism spectrum disorder
  22. ZUCLOPENTHIXOL [Suspect]
     Active Substance: ZUCLOPENTHIXOL
     Indication: COVID-19 immunisation
  23. LURASIDONE [Suspect]
     Active Substance: LURASIDONE
     Indication: Schizophrenia
     Route: 065
  24. LURASIDONE [Suspect]
     Active Substance: LURASIDONE
     Indication: COVID-19 immunisation
  25. LURASIDONE [Suspect]
     Active Substance: LURASIDONE
     Indication: Autism spectrum disorder
  26. BIPERIDEN [Suspect]
     Active Substance: BIPERIDEN
     Indication: Schizophrenia
     Route: 065
  27. BIPERIDEN [Suspect]
     Active Substance: BIPERIDEN
     Indication: COVID-19 immunisation
  28. BIPERIDEN [Suspect]
     Active Substance: BIPERIDEN
     Indication: Autism spectrum disorder

REACTIONS (6)
  - Neutropenia [Unknown]
  - Psychotic symptom [Unknown]
  - Drug ineffective [Unknown]
  - Granulocyte count decreased [Recovered/Resolved]
  - Neutrophil count decreased [Recovered/Resolved]
  - White blood cell count decreased [Recovered/Resolved]

NARRATIVE: CASE EVENT DATE: 20220201
